FAERS Safety Report 20648237 (Version 1)
Quarter: 2022Q1

REPORT INFORMATION
  Report Type: Spontaneous
  Country: US (occurrence: US)
  Receive Date: 20220329
  Receipt Date: 20220329
  Transmission Date: 20220423
  Serious: Yes (Hospitalization)
  Sender: FDA-Public Use
  Company Number: US-CURIUM-2022000133

PATIENT
  Age: 69 Year
  Sex: Female

DRUGS (2)
  1. TECHNETIUM TC-99M SODIUM PERTECHNETATE [Suspect]
     Active Substance: TECHNETIUM TC-99M SODIUM PERTECHNETATE
     Indication: Perfusion brain scan
     Route: 051
     Dates: start: 20220303, end: 20220303
  2. EXAMETAZIME [Concomitant]
     Indication: Perfusion brain scan
     Route: 051
     Dates: start: 20220303, end: 20220303

REACTIONS (1)
  - Unresponsive to stimuli [Recovered/Resolved]

NARRATIVE: CASE EVENT DATE: 20220303
